FAERS Safety Report 9611668 (Version 2)
Quarter: 2013Q4

REPORT INFORMATION
  Report Type: Spontaneous
  Country: US (occurrence: US)
  Receive Date: 20131010
  Receipt Date: 20131108
  Transmission Date: 20140711
  Serious: Yes (Life-Threatening, Disabling)
  Sender: FDA-Public Use
  Company Number: US-CELGENEUS-163-POMAL-13101191

PATIENT
  Age: 79 Year
  Sex: Male
  Weight: 69.92 kg

DRUGS (9)
  1. POMALYST [Suspect]
     Indication: PLASMA CELL MYELOMA
     Dosage: 4 MILLIGRAM
     Route: 048
     Dates: start: 20130424, end: 20130927
  2. DEXAMETHASONE [Concomitant]
     Indication: PRODUCT USED FOR UNKNOWN INDICATION
     Dosage: 12 MILLIGRAM
     Route: 048
     Dates: start: 20130927
  3. DEXAMETHASONE [Concomitant]
     Dosage: 16 MILLIGRAM
     Route: 065
     Dates: start: 20130927
  4. CIALIS [Concomitant]
     Indication: PROSTATIC DISORDER
     Route: 048
     Dates: start: 20130722
  5. FINASTERIDE [Concomitant]
     Indication: PROSTATIC DISORDER
     Route: 048
     Dates: start: 20130722
  6. MAGNESIUM OXIDE [Concomitant]
     Indication: PRODUCT USED FOR UNKNOWN INDICATION
     Route: 048
     Dates: start: 20130912
  7. ONDANSETRON [Concomitant]
     Indication: NAUSEA
     Dosage: 16 MILLIGRAM
     Route: 048
     Dates: start: 20131004
  8. OXYCODONE HCL [Concomitant]
     Indication: PAIN
     Dosage: 30 MILLIGRAM
     Route: 048
     Dates: start: 20130927
  9. TAMSULOSIN HCL [Concomitant]
     Indication: BLADDER DISORDER
     Route: 048
     Dates: start: 20130722

REACTIONS (1)
  - Plasma cell myeloma [Recovering/Resolving]
